FAERS Safety Report 16207742 (Version 2)
Quarter: 2019Q2

REPORT INFORMATION
  Report Type: Spontaneous
  Country: BR (occurrence: BR)
  Receive Date: 20190417
  Receipt Date: 20190429
  Transmission Date: 20190711
  Serious: Yes (Hospitalization)
  Sender: FDA-Public Use
  Company Number: BR-GLAXOSMITHKLINE-BR2019GSK033219

PATIENT
  Sex: Female

DRUGS (1)
  1. NUCALA [Suspect]
     Active Substance: MEPOLIZUMAB
     Indication: ASTHMA
     Dosage: 100 MG, UNK
     Dates: start: 20181113

REACTIONS (6)
  - Drug ineffective [Unknown]
  - Infection [Unknown]
  - Inappropriate schedule of product administration [Recovered/Resolved]
  - Ill-defined disorder [Unknown]
  - Feeling abnormal [Unknown]
  - Malaise [Unknown]
